FAERS Safety Report 5266801-5 (Version None)
Quarter: 2007Q1

REPORT INFORMATION
  Report Type: 
  Country: None (occurrence: None)
  Receive Date: 20070306
  Receipt Date: 20070220
  Transmission Date: 20070707
  Serious: Yes (Life-Threatening, Other)
  Sender: FDA-Public Use
  Company Number: AECAN200700033

PATIENT
  Age: 74 Year
  Sex: Female
  Weight: 49.8957 kg

DRUGS (15)
  1. GAMUNEX [Suspect]
     Indication: PEMPHIGOID
     Dosage: 25 GM;  IV
     Route: 042
     Dates: start: 20070205, end: 20070207
  2. IGIVNEX - TABLETS (IMMUNE GLOBULIN IV (HUMAN), CAPRYLATE/CHROMATOGRAPH [Suspect]
     Dosage: 10 GM,  IV
     Route: 042
     Dates: start: 20070207, end: 20070207
  3. PREDNISONE [Concomitant]
  4. CYCLOPHOSPHAMIDE [Concomitant]
  5. ZOPICLONE [Concomitant]
  6. DIDROCAL [Concomitant]
  7. ATIVAN [Concomitant]
  8. ATENOLOL [Concomitant]
  9. NORVASC [Concomitant]
  10. DIOVAN [Concomitant]
  11. BECLOMETHASONE DIPROPIONATE [Concomitant]
  12. NYSTATIN [Concomitant]
  13. TYLENOL [Concomitant]
  14. QUININE [Concomitant]
  15. HYPNOTICS AND SEDATIVES [Concomitant]

REACTIONS (3)
  - FEELING ABNORMAL [None]
  - HEADACHE [None]
  - TRANSIENT ISCHAEMIC ATTACK [None]
